FAERS Safety Report 10151385 (Version 5)
Quarter: 2017Q3

REPORT INFORMATION
  Report Type: Report from Study
  Country: None (occurrence: JP)
  Receive Date: 20140502
  Receipt Date: 20170814
  Transmission Date: 20171127
  Serious: Yes (Life-Threatening, Disabling, Other)
  Sender: FDA-Public Use
  Company Number: JP-ABBVIE-01P-087-0114485-00

PATIENT
  Age: 22 Year
  Sex: Male
  Weight: 59.5 kg

DRUGS (34)
  1. ZERIT [Suspect]
     Active Substance: STAVUDINE
     Indication: HIV INFECTION
     Route: 048
     Dates: start: 19970825, end: 19980227
  2. AMLODIPINE BESILATE [Concomitant]
     Active Substance: AMLODIPINE BESYLATE
     Indication: HYPERTENSION
     Dates: start: 20081031, end: 20090105
  3. ZIAGEN [Suspect]
     Active Substance: ABACAVIR SULFATE
     Indication: HIV INFECTION
     Route: 048
     Dates: start: 20000724, end: 20000725
  4. ZIAGEN [Suspect]
     Active Substance: ABACAVIR SULFATE
     Route: 048
     Dates: start: 20011020, end: 20011027
  5. ZERIT [Suspect]
     Active Substance: STAVUDINE
     Route: 048
     Dates: start: 19980803, end: 19981109
  6. ZERIT [Suspect]
     Active Substance: STAVUDINE
     Route: 048
     Dates: start: 19981109, end: 19990619
  7. INVIRASE [Suspect]
     Active Substance: SAQUINAVIR MESYLATE
     Route: 048
     Dates: start: 20000524, end: 20001224
  8. COAGULATION FACTOR VIII [Concomitant]
     Indication: HAEMORRHAGE
     Dosage: 9-10 KU/MONTH
     Dates: start: 19991101, end: 20120401
  9. CRIXIVAN [Suspect]
     Active Substance: INDINAVIR SULFATE
     Indication: HIV INFECTION
     Route: 048
     Dates: start: 20000318, end: 20000524
  10. INVIRASE [Suspect]
     Active Substance: SAQUINAVIR MESYLATE
     Indication: HIV INFECTION
     Route: 048
     Dates: start: 19990619, end: 20000318
  11. RIBAVIRIN. [Concomitant]
     Active Substance: RIBAVIRIN
     Indication: HEPATITIS C
     Route: 048
     Dates: start: 20020717, end: 20030712
  12. TENOFOVIR [Concomitant]
     Active Substance: TENOFOVIR
     Indication: HIV INFECTION
     Route: 048
     Dates: start: 20040425, end: 20080919
  13. CROSS EIGHT M [Concomitant]
     Active Substance: ANTIHEMOPHILIC FACTOR HUMAN
     Indication: COAGULATION FACTOR VIII LEVEL
     Dates: start: 19970825
  14. NORVIR [Suspect]
     Active Substance: RITONAVIR
     Indication: HIV INFECTION
     Route: 048
     Dates: start: 19990619, end: 19991031
  15. ZERIT [Suspect]
     Active Substance: STAVUDINE
     Route: 048
     Dates: start: 19980227, end: 19980803
  16. EPIVIR [Suspect]
     Active Substance: LAMIVUDINE
     Indication: HIV INFECTION
     Route: 048
     Dates: start: 20040515, end: 20080919
  17. RIBAVIRIN. [Concomitant]
     Active Substance: RIBAVIRIN
  18. LEXIVA [Concomitant]
     Active Substance: FOSAMPRENAVIR CALCIUM
     Indication: HIV INFECTION
     Route: 048
     Dates: start: 20080920
  19. TRUVADA [Concomitant]
     Active Substance: EMTRICITABINE\TENOFOVIR DISOPROXIL FUMARATE
     Indication: HIV INFECTION
     Route: 048
     Dates: start: 20080920
  20. ISENTRESS [Concomitant]
     Active Substance: RALTEGRAVIR POTASSIUM
     Indication: HIV INFECTION
     Dosage: DAILY
     Route: 048
     Dates: start: 20080920
  21. KALETRA [Suspect]
     Active Substance: LOPINAVIR\RITONAVIR
     Indication: HIV INFECTION
     Route: 048
     Dates: end: 20040424
  22. STOCRIN [Suspect]
     Active Substance: EFAVIRENZ
     Indication: HIV INFECTION
     Route: 048
     Dates: start: 20000724, end: 20000725
  23. PEGINTERFERON ALFA-2B [Suspect]
     Active Substance: PEGINTERFERON ALFA-2B
     Indication: HEPATITIS C
     Dosage: 1.5 UG/KG DAILY
     Route: 065
     Dates: start: 20020817, end: 20030712
  24. VIDEX [Suspect]
     Active Substance: DIDANOSINE
     Indication: HIV INFECTION
     Route: 048
     Dates: start: 19941219, end: 19970307
  25. NORVIR [Suspect]
     Active Substance: RITONAVIR
     Indication: HIV INFECTION
     Route: 048
     Dates: start: 20050425, end: 20080919
  26. NORVIR [Suspect]
     Active Substance: RITONAVIR
     Route: 048
     Dates: start: 20080920, end: 20110617
  27. NORVIR [Suspect]
     Active Substance: RITONAVIR
     Route: 048
     Dates: start: 19991101, end: 20001224
  28. NORVIR [Suspect]
     Active Substance: RITONAVIR
     Route: 048
     Dates: start: 20110618
  29. ZERIT [Suspect]
     Active Substance: STAVUDINE
     Route: 048
     Dates: start: 20001225, end: 20011020
  30. VIDEX [Suspect]
     Active Substance: DIDANOSINE
     Dosage: EC
     Route: 048
     Dates: start: 20010721, end: 20040514
  31. VIDEX [Suspect]
     Active Substance: DIDANOSINE
     Route: 048
     Dates: start: 19970307, end: 20010721
  32. ATAZANAVIR [Concomitant]
     Active Substance: ATAZANAVIR
     Indication: HIV INFECTION
     Route: 048
     Dates: start: 20040425, end: 20080919
  33. OLMESARTAN MEDOXOMIL. [Concomitant]
     Active Substance: OLMESARTAN MEDOXOMIL
     Indication: HYPERTENSION
     Dates: start: 20081031
  34. STOCRIN [Suspect]
     Active Substance: EFAVIRENZ
     Dosage: DIVIDED DOSE
     Route: 048
     Dates: start: 20000925, end: 20001002

REACTIONS (12)
  - Palpitations [Recovering/Resolving]
  - Palpitations [Recovering/Resolving]
  - Fibrin degradation products increased [Recovered/Resolved]
  - Nervous system disorder [Recovered/Resolved]
  - Visual impairment [Recovered/Resolved]
  - Hepatic function abnormal [Not Recovered/Not Resolved]
  - Influenza like illness [Recovered/Resolved]
  - Pulmonary hypertension [Not Recovered/Not Resolved]
  - Dizziness [Recovered/Resolved]
  - Tremor [Recovered/Resolved]
  - Nausea [Recovered/Resolved]
  - Dizziness [Recovering/Resolving]

NARRATIVE: CASE EVENT DATE: 19980316
